FAERS Safety Report 11723562 (Version 1)
Quarter: 2015Q4

REPORT INFORMATION
  Report Type: Spontaneous
  Country: US (occurrence: US)
  Receive Date: 20151111
  Receipt Date: 20151111
  Transmission Date: 20160304
  Serious: Yes (Hospitalization)
  Sender: FDA-Public Use
  Company Number: US-DYAX CORP.-2015DX000469

PATIENT
  Sex: Female

DRUGS (1)
  1. KALBITOR [Suspect]
     Active Substance: ECALLANTIDE
     Indication: HEREDITARY ANGIOEDEMA
     Route: 065

REACTIONS (5)
  - Hereditary angioedema [Unknown]
  - Lower respiratory tract infection fungal [None]
  - Pneumonia aspiration [Unknown]
  - Lung infection [Unknown]
  - Mastocytosis [Unknown]
